FAERS Safety Report 23571619 (Version 3)
Quarter: 2024Q2

REPORT INFORMATION
  Report Type: Spontaneous
  Country: TN (occurrence: TN)
  Receive Date: 20240227
  Receipt Date: 20240430
  Transmission Date: 20240716
  Serious: Yes (Death, Hospitalization, Other)
  Sender: FDA-Public Use
  Company Number: TN-SA-SAC20240227000152

PATIENT
  Age: 8 Month
  Sex: Male
  Weight: 5.5 kg

DRUGS (3)
  1. MYOZYME [Suspect]
     Active Substance: ALGLUCOSIDASE ALFA
     Indication: Glycogen storage disease type II
     Dosage: 2 DF (VIALS), QOW
     Route: 042
     Dates: start: 20231109, end: 20240205
  2. CARNITINE [Concomitant]
     Active Substance: CARNITINE
     Indication: Carnitine deficiency
     Dosage: 100 MG/KG, QD
  3. AUGMENTIN [Concomitant]
     Active Substance: AMOXICILLIN\CLAVULANATE POTASSIUM
     Dosage: UNK
     Route: 042

REACTIONS (12)
  - Cardiac failure acute [Fatal]
  - Cardiac failure [Fatal]
  - Heart sounds abnormal [Fatal]
  - Hepatojugular reflux [Fatal]
  - Hepatomegaly [Fatal]
  - Respiratory tract infection viral [Fatal]
  - Pneumonia aspiration [Fatal]
  - Asphyxia [Fatal]
  - Pyrexia [Fatal]
  - Cough [Fatal]
  - Dyspnoea [Fatal]
  - Pulmonary congestion [Fatal]

NARRATIVE: CASE EVENT DATE: 20240201
